FAERS Safety Report 7957251-9 (Version None)
Quarter: 2011Q4

REPORT INFORMATION
  Report Type: 
  Country: None (occurrence: None)
  Receive Date: 20111201
  Receipt Date: 20111116
  Transmission Date: 20120403
  Serious: Yes (Other)
  Sender: FDA-Public Use
  Company Number: LTI2011A00142

PATIENT
  Age: 59 Year
  Sex: Female

DRUGS (1)
  1. ACTOS [Suspect]
     Indication: TYPE 2 DIABETES MELLITUS
     Dosage: 45 MG (30 MG, 1 IN 1 D), ORAL
     Route: 048
     Dates: start: 20080526, end: 20110421

REACTIONS (3)
  - URINARY TRACT NEOPLASM [None]
  - HAEMATURIA [None]
  - URINE CYTOLOGY ABNORMAL [None]
